FAERS Safety Report 4571515-0 (Version None)
Quarter: 2005Q1

REPORT INFORMATION
  Report Type: 
  Country: None (occurrence: None)
  Receive Date: 20050203
  Receipt Date: 20050203
  Transmission Date: 20050727
  Serious: Yes (Life-Threatening)
  Sender: FDA-Public Use
  Company Number: None

PATIENT
  Age: 48 Year
  Sex: Female
  Weight: 57.6068 kg

DRUGS (6)
  1. RELAFEN [Suspect]
     Indication: ANTIALLERGIC THERAPY
     Dosage: ORAL
     Route: 048
     Dates: start: 20030101
  2. RELAFEN [Suspect]
     Indication: PAIN
     Dosage: ORAL
     Route: 048
     Dates: start: 20030101
  3. RELAFEN [Suspect]
     Indication: ANTIALLERGIC THERAPY
     Dosage: ORAL
     Route: 048
     Dates: start: 20040101
  4. RELAFEN [Suspect]
     Indication: PAIN
     Dosage: ORAL
     Route: 048
     Dates: start: 20040101
  5. DARVON [Suspect]
     Indication: HYPERSENSITIVITY
     Dosage: ORAL
     Route: 048
  6. CLARITIN [Suspect]
     Indication: HYPERSENSITIVITY
     Dosage: ORAL
     Route: 048

REACTIONS (3)
  - DRUG HYPERSENSITIVITY [None]
  - DYSPNOEA [None]
  - URTICARIA [None]
